FAERS Safety Report 7101327-5 (Version None)
Quarter: 2010Q4

REPORT INFORMATION
  Report Type: 
  Country: None (occurrence: None)
  Receive Date: 20101108
  Receipt Date: 20101027
  Transmission Date: 20110411
  Serious: Yes (Hospitalization)
  Sender: FDA-Public Use
  Company Number: 021232

PATIENT
  Age: 30 Year
  Sex: Male

DRUGS (3)
  1. KEPPRA [Suspect]
     Indication: EPILEPSY
     Dosage: (250 MG BID ORAL) (1000 MG QD ORAL)
     Route: 048
     Dates: end: 20100101
  2. KEPPRA [Suspect]
     Indication: EPILEPSY
     Dosage: (250 MG BID ORAL) (1000 MG QD ORAL)
     Route: 048
     Dates: start: 20090901
  3. ATHYMIL [Concomitant]

REACTIONS (3)
  - CONDITION AGGRAVATED [None]
  - DEPRESSION [None]
  - DRUG DEPENDENCE [None]
